FAERS Safety Report 7469927-0 (Version None)
Quarter: 2011Q2

REPORT INFORMATION
  Report Type: 
  Country: None (occurrence: None)
  Receive Date: 20110510
  Receipt Date: 20110506
  Transmission Date: 20111010
  Serious: Yes (Other)
  Sender: FDA-Public Use
  Company Number: FR-ROCHE-766700

PATIENT
  Sex: Female
  Weight: 79.5 kg

DRUGS (4)
  1. LAMALINE [Concomitant]
     Dates: start: 20101101
  2. TAXOTERE [Concomitant]
     Dates: start: 20100316, end: 20100702
  3. CARBOPLATIN [Concomitant]
     Dates: start: 20100316, end: 20100702
  4. HERCEPTIN [Suspect]
     Indication: BREAST CANCER
     Dosage: FREQUENCY: PER 3 WEEKS
     Route: 042
     Dates: start: 20100316

REACTIONS (1)
  - RHEUMATOID ARTHRITIS [None]
